FAERS Safety Report 9538953 (Version 1)
Quarter: 2013Q3

REPORT INFORMATION
  Report Type: Spontaneous
  Country: US (occurrence: US)
  Receive Date: 20130920
  Receipt Date: 20130920
  Transmission Date: 20140515
  Serious: No
  Sender: FDA-Public Use
  Company Number: US-BAYER-2013-113797

PATIENT
  Age: 71 Year
  Sex: Female
  Weight: 79.37 kg

DRUGS (12)
  1. ALEVE CAPLET [Suspect]
     Dosage: 2 DF, BID
     Route: 048
     Dates: start: 20130910
  2. OSTEO BI-FLEX [Concomitant]
     Dosage: UNK
  3. MAGNESIUM [Concomitant]
     Dosage: UNK
  4. OMEGA 3 FISH OIL [Concomitant]
     Dosage: UNK
  5. NEXIUM [Concomitant]
     Dosage: UNK
  6. PREMARIN [Concomitant]
     Dosage: UNK
  7. SINGULAIR [Concomitant]
     Dosage: UNK
  8. CILEX [Concomitant]
     Dosage: UNK
  9. SYMBICORT [Concomitant]
     Dosage: UNK
  10. FLUTICASONE PROPIONATE [Concomitant]
     Dosage: UNK
  11. IRON SUPPLEMENT [Concomitant]
     Dosage: UNK
  12. ASPIRIN LOW [Concomitant]
     Dosage: UNK

REACTIONS (2)
  - Swelling [Not Recovered/Not Resolved]
  - Incorrect dose administered [None]
